FAERS Safety Report 17755137 (Version 12)
Quarter: 2025Q1

REPORT INFORMATION
  Report Type: Spontaneous
  Country: US (occurrence: US)
  Receive Date: 20200507
  Receipt Date: 20250313
  Transmission Date: 20250409
  Serious: Yes (Hospitalization, Other)
  Sender: GILEAD
  Company Number: US-GILEAD-2020-0464469

PATIENT
  Age: 39 Year
  Sex: Male
  Weight: 99.773 kg

DRUGS (84)
  1. TRUVADA [Suspect]
     Active Substance: EMTRICITABINE\TENOFOVIR DISOPROXIL FUMARATE
     Indication: HIV infection
     Route: 048
     Dates: start: 200511, end: 20080703
  2. TRUVADA [Suspect]
     Active Substance: EMTRICITABINE\TENOFOVIR DISOPROXIL FUMARATE
     Indication: Hepatitis B
     Route: 048
     Dates: start: 200807, end: 201406
  3. ATRIPLA [Suspect]
     Active Substance: EFAVIRENZ\EMTRICITABINE\TENOFOVIR DISOPROXIL FUMARATE
     Indication: HIV infection
     Route: 048
     Dates: start: 20080703, end: 20140624
  4. ATRIPLA [Suspect]
     Active Substance: EFAVIRENZ\EMTRICITABINE\TENOFOVIR DISOPROXIL FUMARATE
     Indication: Hepatitis B
  5. BIKTARVY [Concomitant]
     Active Substance: BICTEGRAVIR SODIUM\EMTRICITABINE\TENOFOVIR ALAFENAMIDE FUMARATE
  6. ACETAMINOPHEN [Concomitant]
     Active Substance: ACETAMINOPHEN
     Route: 065
     Dates: start: 201205
  7. ACYCLOVIR [Concomitant]
     Active Substance: ACYCLOVIR
     Route: 065
     Dates: start: 201204
  8. AMITRIPTYLINE [Concomitant]
     Active Substance: AMITRIPTYLINE
     Route: 065
     Dates: start: 1996, end: 1996
  9. ASPIRIN [Concomitant]
     Active Substance: ASPIRIN
     Route: 065
     Dates: start: 20190207
  10. ATORVASTATIN [Concomitant]
     Active Substance: ATORVASTATIN
     Route: 065
     Dates: start: 2016
  11. BACTRIM [Concomitant]
     Active Substance: SULFAMETHOXAZOLE\TRIMETHOPRIM
     Route: 065
     Dates: start: 1994, end: 1999
  12. CIMETIDINE [Concomitant]
     Active Substance: CIMETIDINE
  13. CORTISONE [Concomitant]
     Active Substance: CORTISONE
  14. DEPAKOTE [Concomitant]
     Active Substance: DIVALPROEX SODIUM
     Route: 065
     Dates: start: 201208, end: 2018
  15. DEPAKOTE [Concomitant]
     Active Substance: DIVALPROEX SODIUM
     Route: 065
     Dates: start: 201204, end: 201208
  16. DEPAKOTE [Concomitant]
     Active Substance: DIVALPROEX SODIUM
     Route: 065
     Dates: start: 20180427, end: 201812
  17. DEPAKOTE [Concomitant]
     Active Substance: DIVALPROEX SODIUM
     Route: 065
     Dates: start: 201812
  18. ESOMEPRAZOLE [Concomitant]
     Active Substance: ESOMEPRAZOLE
  19. FAMOTIDINE [Concomitant]
     Active Substance: FAMOTIDINE
  20. MORNIFLUMATE [Concomitant]
     Active Substance: MORNIFLUMATE
     Route: 065
     Dates: start: 201704, end: 201710
  21. MORNIFLUMATE [Concomitant]
     Active Substance: MORNIFLUMATE
     Route: 065
     Dates: start: 201711, end: 201809
  22. MORNIFLUMATE [Concomitant]
     Active Substance: MORNIFLUMATE
     Route: 065
     Dates: start: 201811
  23. HEPARIN [Concomitant]
     Active Substance: HEPARIN SODIUM
     Route: 065
     Dates: start: 2016, end: 2019
  24. INDINAVIR [Concomitant]
     Active Substance: INDINAVIR
     Route: 065
     Dates: start: 1996, end: 1998
  25. LANSOPRAZOLE [Concomitant]
     Active Substance: LANSOPRAZOLE
  26. LITHIUM [Concomitant]
     Active Substance: LITHIUM
  27. OMEPRAZOLE [Concomitant]
     Active Substance: OMEPRAZOLE
     Route: 065
     Dates: start: 1998
  28. PREDNISONE [Concomitant]
     Active Substance: PREDNISONE
     Route: 065
     Dates: start: 20160130, end: 201802
  29. PREDNISONE [Concomitant]
     Active Substance: PREDNISONE
     Route: 065
     Dates: start: 20190207, end: 20190211
  30. PREDNISONE [Concomitant]
     Active Substance: PREDNISONE
     Route: 065
     Dates: start: 20190213, end: 20190305
  31. PREDNISONE [Concomitant]
     Active Substance: PREDNISONE
     Route: 065
     Dates: start: 20190404, end: 20190408
  32. PREDNISONE [Concomitant]
     Active Substance: PREDNISONE
     Route: 065
     Dates: start: 20190729, end: 20190802
  33. TRIAMCINOLONE [Concomitant]
     Active Substance: TRIAMCINOLONE
  34. VANCOMYCIN [Concomitant]
     Active Substance: VANCOMYCIN
     Route: 065
     Dates: start: 20160301, end: 201604
  35. CRIXIVAN [Concomitant]
     Active Substance: INDINAVIR SULFATE
     Indication: HIV infection
     Route: 065
     Dates: start: 1996, end: 1998
  36. EPIVIR [Concomitant]
     Active Substance: LAMIVUDINE
     Dates: start: 20140624, end: 201410
  37. INTELENCE [Concomitant]
     Active Substance: ETRAVIRINE
     Route: 065
     Dates: start: 20140624, end: 201505
  38. INTELENCE [Concomitant]
     Active Substance: ETRAVIRINE
     Route: 065
     Dates: start: 201505, end: 201512
  39. INTELENCE [Concomitant]
     Active Substance: ETRAVIRINE
     Route: 065
     Dates: start: 201601
  40. INVIRASE [Concomitant]
     Active Substance: SAQUINAVIR MESYLATE
     Indication: HIV infection
     Route: 065
     Dates: start: 1996, end: 1998
  41. NORVIR [Concomitant]
     Active Substance: RITONAVIR
     Indication: HIV infection
     Route: 065
     Dates: start: 20140624, end: 201505
  42. NORVIR [Concomitant]
     Active Substance: RITONAVIR
     Route: 065
     Dates: start: 201505, end: 201601
  43. NORVIR [Concomitant]
     Active Substance: RITONAVIR
     Route: 065
     Dates: start: 20160105, end: 201608
  44. PREZCOBIX [Concomitant]
     Active Substance: COBICISTAT\DARUNAVIR ETHANOLATE
     Indication: HIV infection
     Route: 065
     Dates: start: 201608
  45. PREZISTA [Concomitant]
     Active Substance: DARUNAVIR ETHANOLATE
     Indication: HIV infection
     Route: 065
     Dates: start: 20150624
  46. PREZISTA [Concomitant]
     Active Substance: DARUNAVIR ETHANOLATE
     Route: 065
     Dates: start: 201505, end: 201601
  47. PREZISTA [Concomitant]
     Active Substance: DARUNAVIR ETHANOLATE
     Route: 065
     Dates: start: 201601, end: 201608
  48. RETROVIR [Concomitant]
     Active Substance: ZIDOVUDINE
     Indication: HIV infection
     Route: 065
     Dates: start: 1988, end: 1991
  49. VIDEX [Concomitant]
     Active Substance: DIDANOSINE
     Indication: HIV infection
     Route: 065
     Dates: start: 1991, end: 1991
  50. ZIAGEN [Concomitant]
     Active Substance: ABACAVIR SULFATE
     Route: 065
     Dates: start: 1988, end: 1991
  51. ZERIT [Concomitant]
     Active Substance: STAVUDINE
     Indication: HIV infection
     Route: 065
     Dates: start: 1992, end: 1994
  52. AMOXICILLIN [Concomitant]
     Active Substance: AMOXICILLIN
  53. DICYCLOMINE [Concomitant]
     Active Substance: DICYCLOMINE HYDROCHLORIDE
  54. ALBUTEROL [Concomitant]
     Active Substance: ALBUTEROL
  55. ANDROGEL [Concomitant]
     Active Substance: TESTOSTERONE
  56. AZITHROMYCIN [Concomitant]
     Active Substance: AZITHROMYCIN
  57. BANOPHEN [Concomitant]
     Active Substance: DIPHENHYDRAMINE HYDROCHLORIDE
  58. BENZONATATE [Concomitant]
     Active Substance: BENZONATATE
  59. BUSPIRONE [Concomitant]
     Active Substance: BUSPIRONE HYDROCHLORIDE
  60. CEPHALEXIN [Concomitant]
     Active Substance: CEPHALEXIN
  61. CIPROFLOXACIN [Concomitant]
     Active Substance: CIPROFLOXACIN
  62. CLOTRIMAZOLE [Concomitant]
     Active Substance: CLOTRIMAZOLE
  63. DESMOPRESSIN [Concomitant]
     Active Substance: DESMOPRESSIN
  64. DICYCLOMINE HYDROCHLORIDE [Concomitant]
     Active Substance: DICYCLOMINE HYDROCHLORIDE
  65. DILAUDID [Concomitant]
     Active Substance: HYDROMORPHONE HYDROCHLORIDE
  66. DOXYCYCLINE [Concomitant]
     Active Substance: DOXYCYCLINE
  67. GABAPENTIN [Concomitant]
     Active Substance: GABAPENTIN
  68. IMIQUIMOD [Concomitant]
     Active Substance: IMIQUIMOD
  69. KADIAN [Concomitant]
     Active Substance: MORPHINE SULFATE
  70. LAMIVUDINE [Concomitant]
     Active Substance: LAMIVUDINE
  71. LAMOTRIGINE [Concomitant]
     Active Substance: LAMOTRIGINE
  72. METRONIDAZOLE [Concomitant]
     Active Substance: METRONIDAZOLE
  73. MORPHINE [Concomitant]
     Active Substance: MORPHINE
  74. MS CONTIN [Concomitant]
     Active Substance: MORPHINE SULFATE
  75. NAPROXEN [Concomitant]
     Active Substance: NAPROXEN
  76. NARCAN [Concomitant]
     Active Substance: NALOXONE HYDROCHLORIDE
  77. ONDANSETRON [Concomitant]
     Active Substance: ONDANSETRON
  78. ZOLPIDEM [Concomitant]
     Active Substance: ZOLPIDEM TARTRATE
  79. RANITIDINE [Concomitant]
     Active Substance: RANITIDINE
  80. VALIUM [Concomitant]
     Active Substance: DIAZEPAM
  81. LISINOPRIL [Concomitant]
     Active Substance: LISINOPRIL
  82. CELEBREX [Concomitant]
     Active Substance: CELECOXIB
  83. FLEET ENEMA [Concomitant]
     Active Substance: SODIUM PHOSPHATE, DIBASIC\SODIUM PHOSPHATE, MONOBASIC
  84. MORNIFLUMATE [Concomitant]
     Active Substance: MORNIFLUMATE

REACTIONS (18)
  - Multiple fractures [Unknown]
  - Foot fracture [Recovered/Resolved]
  - Rib fracture [Not Recovered/Not Resolved]
  - Hand fracture [Recovered/Resolved]
  - Rib fracture [Recovered/Resolved]
  - Hand fracture [Not Recovered/Not Resolved]
  - Renal tubular dysfunction [Not Recovered/Not Resolved]
  - Osteoporosis [Not Recovered/Not Resolved]
  - Renal impairment [Not Recovered/Not Resolved]
  - Renal disorder [Not Recovered/Not Resolved]
  - Renal failure [Unknown]
  - Musculoskeletal chest pain [Unknown]
  - Off label use [Recovered/Resolved]
  - Gait disturbance [Not Recovered/Not Resolved]
  - Osteopenia [Not Recovered/Not Resolved]
  - Bone density decreased [Unknown]
  - Acute kidney injury [Not Recovered/Not Resolved]
  - Acute kidney injury [Recovered/Resolved]

NARRATIVE: CASE EVENT DATE: 20080604
